FAERS Safety Report 12264961 (Version 1)
Quarter: 2016Q2

REPORT INFORMATION
  Report Type: Spontaneous
  Country: US (occurrence: US)
  Receive Date: 20160413
  Receipt Date: 20160413
  Transmission Date: 20160815
  Serious: No
  Sender: FDA-Public Use
  Company Number: US-JNJFOC-20160318753

PATIENT
  Age: 64 Year
  Sex: Male
  Weight: 99.79 kg

DRUGS (2)
  1. TYLENOL EXTRA STRENGTH [Suspect]
     Active Substance: ACETAMINOPHEN
     Indication: HEADACHE
     Route: 048
     Dates: start: 20160315, end: 20160315
  2. TYLENOL EXTRA STRENGTH [Suspect]
     Active Substance: ACETAMINOPHEN
     Indication: MUSCULOSKELETAL STIFFNESS
     Route: 048
     Dates: start: 20160315, end: 20160315

REACTIONS (3)
  - Off label use [Unknown]
  - Product use issue [Unknown]
  - Drug ineffective for unapproved indication [Unknown]
